FAERS Safety Report 17720092 (Version 2)
Quarter: 2020Q2

REPORT INFORMATION
  Report Type: Not Available
  Country: US (occurrence: US)
  Receive Date: 20200428
  Receipt Date: 20200619
  Transmission Date: 20200714
  Serious: No
  Sender: FDA-Public Use
  Company Number: US-NEUROCRINE BIOSCIENCES INC.-2020NBI01341

PATIENT
  Age: 57 Year
  Sex: Male

DRUGS (14)
  1. ESCITALOPRAM [Concomitant]
     Active Substance: ESCITALOPRAM OXALATE
  2. INGREZZA [Suspect]
     Active Substance: VALBENAZINE
     Indication: TARDIVE DYSKINESIA
     Route: 048
     Dates: start: 20200311, end: 20200419
  3. CLOZAPINE. [Concomitant]
     Active Substance: CLOZAPINE
  4. SILODOSIN. [Concomitant]
     Active Substance: SILODOSIN
  5. BENZATROPINE [Concomitant]
     Active Substance: BENZTROPINE
  6. FENOFIBRATE. [Concomitant]
     Active Substance: FENOFIBRATE
  7. NEXIUM [Concomitant]
     Active Substance: ESOMEPRAZOLE MAGNESIUM
  8. VITAMIN D [Concomitant]
     Active Substance: VITAMIN D NOS
  9. MIRALAX [Concomitant]
     Active Substance: POLYETHYLENE GLYCOL 3350
  10. TYLENOL [Concomitant]
     Active Substance: ACETAMINOPHEN
  11. FINASTERIDE. [Concomitant]
     Active Substance: FINASTERIDE
  12. PRAMIPEXOLE. [Concomitant]
     Active Substance: PRAMIPEXOLE
  13. FISH OIL [Concomitant]
     Active Substance: FISH OIL
  14. ALPRAZOLAM. [Concomitant]
     Active Substance: ALPRAZOLAM

REACTIONS (2)
  - Diarrhoea [Recovered/Resolved]
  - Nausea [Recovered/Resolved]

NARRATIVE: CASE EVENT DATE: 20200401
